FAERS Safety Report 5518408-X (Version None)
Quarter: 2007Q4

REPORT INFORMATION
  Report Type: 
  Country: None (occurrence: None)
  Receive Date: 20071113
  Receipt Date: 20071101
  Transmission Date: 20080405
  Serious: Yes (Disabling)
  Sender: FDA-Public Use
  Company Number: GXKR2007DK09464

PATIENT
  Age: 65 Year
  Sex: Female

DRUGS (1)
  1. CAPTOL                  (CAPTOPRIL) [Suspect]
     Dosage: 150 MG/DAY, ORAL
     Route: 048
     Dates: start: 20020101

REACTIONS (1)
  - TYPE 1 DIABETES MELLITUS [None]
